FAERS Safety Report 22271269 (Version 2)
Quarter: 2023Q2

REPORT INFORMATION
  Report Type: Spontaneous
  Country: US (occurrence: US)
  Receive Date: 20230501
  Receipt Date: 20230503
  Transmission Date: 20230721
  Serious: No
  Sender: FDA-Public Use
  Company Number: US-PFIZER INC-202300170311

PATIENT
  Age: 71 Year
  Sex: Male
  Weight: 104.33 kg

DRUGS (4)
  1. SPIRONOLACTONE [Suspect]
     Active Substance: SPIRONOLACTONE
     Indication: Hypertension
     Dosage: 25 MG, DAILY
     Route: 048
  2. SPIRONOLACTONE [Suspect]
     Active Substance: SPIRONOLACTONE
     Indication: Blood creatinine
  3. OZEMPIC [Concomitant]
     Active Substance: SEMAGLUTIDE
     Indication: Type 2 diabetes mellitus
     Dosage: 200 MG(WAS ON 100MG UNTIL ABOUT A MONTH OR TWO AGO THEN INCREASED TO 200MG.)
  4. OZEMPIC [Concomitant]
     Active Substance: SEMAGLUTIDE
     Dosage: 100 MG(WAS ON 100MG UNTIL ABOUT A MONTH OR TWO AGO THEN INCREASED TO 200MG.)

REACTIONS (1)
  - Breast tenderness [Not Recovered/Not Resolved]
